FAERS Safety Report 5127278-3 (Version None)
Quarter: 2006Q4

REPORT INFORMATION
  Report Type: 
  Country: None (occurrence: None)
  Receive Date: 20061013
  Receipt Date: 20060918
  Transmission Date: 20070319
  Serious: Yes (Hospitalization)
  Sender: FDA-Public Use
  Company Number: FI-GILEAD-2006-0010238

PATIENT
  Sex: Male

DRUGS (13)
  1. VIREAD [Suspect]
     Indication: HIV INFECTION
     Dates: start: 20050802
  2. COMBIVIR [Suspect]
     Indication: HIV INFECTION
  3. TMC114 [Suspect]
     Indication: HIV INFECTION
     Dates: start: 20060725
  4. TMC125 [Suspect]
     Indication: HIV INFECTION
     Dates: start: 20060725
  5. FUZEON [Suspect]
     Indication: HIV INFECTION
     Route: 058
     Dates: start: 20060725
  6. NORVIR [Suspect]
     Indication: HIV INFECTION
     Route: 048
     Dates: start: 20060725
  7. FOSCAVIR [Suspect]
     Indication: HIV INFECTION
     Route: 042
     Dates: start: 20060725, end: 20060808
  8. COTRIM [Concomitant]
     Indication: ANTIBIOTIC PROPHYLAXIS
     Route: 048
  9. DIFLUCAN [Concomitant]
     Indication: STOMATITIS
     Route: 048
  10. OMEPRAZOLE [Concomitant]
     Indication: ABDOMINAL PAIN UPPER
     Route: 048
  11. CALCICHEW [Concomitant]
     Dates: start: 20060725, end: 20060808
  12. EMGESAN [Concomitant]
     Route: 048
     Dates: start: 20060725, end: 20060808
  13. NEUPOGEN [Concomitant]
     Indication: NEUTROPENIA
     Route: 058

REACTIONS (6)
  - ATRIAL FIBRILLATION [None]
  - BLOOD CREATINE PHOSPHOKINASE MB INCREASED [None]
  - CD4 LYMPHOCYTES DECREASED [None]
  - CHEST PAIN [None]
  - HYPERTENSION [None]
  - TROPONIN T INCREASED [None]
